FAERS Safety Report 24735682 (Version 1)
Quarter: 2024Q4

REPORT INFORMATION
  Report Type: Spontaneous
  Country: US (occurrence: US)
  Receive Date: 20241216
  Receipt Date: 20241216
  Transmission Date: 20250115
  Serious: No
  Sender: SANDOZ
  Company Number: US-SANDOZ-SDZ2024US101688

PATIENT
  Sex: Female

DRUGS (2)
  1. HYRIMOZ [Interacting]
     Active Substance: ADALIMUMAB-ADAZ
     Dosage: 40 MG 0.4ML, QW
     Route: 058
     Dates: start: 20241208
  2. HYRIMOZ [Interacting]
     Active Substance: ADALIMUMAB-ADAZ
     Indication: Rheumatoid arthritis
     Dosage: 40 MG 0.4ML,QW
     Route: 058
     Dates: start: 20240503, end: 20241129

REACTIONS (6)
  - Rhinorrhoea [Unknown]
  - Illness [Unknown]
  - Nasal congestion [Unknown]
  - Aphonia [Unknown]
  - Nasopharyngitis [Unknown]
  - Product quality issue [Unknown]
